FAERS Safety Report 23423753 (Version 2)
Quarter: 2024Q3

REPORT INFORMATION
  Report Type: Spontaneous
  Country: US (occurrence: US)
  Receive Date: 20240119
  Receipt Date: 20240821
  Transmission Date: 20241016
  Serious: No
  Sender: SANOFI AVENTIS
  Company Number: US-SA-SAC20240117000848

PATIENT
  Age: 20 Year
  Sex: Female
  Weight: 78 kg

DRUGS (4)
  1. DUPIXENT [Suspect]
     Active Substance: DUPILUMAB
     Indication: Dermatitis atopic
     Dosage: 300 MG, QOW
     Route: 058
     Dates: start: 20230411
  2. DESONIDE [Concomitant]
     Active Substance: DESONIDE
     Indication: Rash
     Dosage: 1 DF, BID
     Route: 061
     Dates: start: 20230224
  3. ELIDEL [Concomitant]
     Active Substance: PIMECROLIMUS
     Indication: Rash
     Dosage: 1 DF, QD
     Route: 061
     Dates: start: 20230726
  4. ZOLOFT [Concomitant]
     Active Substance: SERTRALINE HYDROCHLORIDE
     Dosage: 1 DF, QD
     Route: 048

REACTIONS (1)
  - Maternal exposure during pregnancy [Unknown]

NARRATIVE: CASE EVENT DATE: 20230803
